FAERS Safety Report 8440188-9 (Version None)
Quarter: 2012Q2

REPORT INFORMATION
  Report Type: 
  Country: None (occurrence: None)
  Receive Date: 20120615
  Receipt Date: 20120612
  Transmission Date: 20120825
  Serious: Yes (Hospitalization)
  Sender: FDA-Public Use
  Company Number: FR-ROCHE-1065753

PATIENT
  Sex: Male

DRUGS (7)
  1. LASIX [Concomitant]
  2. LASIX [Concomitant]
  3. SOLU-MEDROL [Concomitant]
  4. SOLU-MEDROL [Concomitant]
  5. CHLORAMINOPHENE [Concomitant]
     Indication: CHRONIC LYMPHOCYTIC LEUKAEMIA
  6. MABTHERA [Suspect]
     Indication: CHRONIC LYMPHOCYTIC LEUKAEMIA
     Dosage: CYCLE 1, RATE OF  50 CC
     Route: 065
     Dates: start: 20110729
  7. NICARDIPINE HYDROCHLORIDE [Concomitant]
     Dosage: AMPOULE

REACTIONS (1)
  - ACUTE PULMONARY OEDEMA [None]
